FAERS Safety Report 16556289 (Version 1)
Quarter: 2019Q3

REPORT INFORMATION
  Report Type: Report from Study
  Country: US (occurrence: US)
  Receive Date: 20190710
  Receipt Date: 20190710
  Transmission Date: 20191004
  Serious: Yes (Hospitalization, Other)
  Sender: FDA-Public Use
  Company Number: US-GILEAD-2019-0417674

PATIENT
  Age: 21 Year
  Sex: Female

DRUGS (3)
  1. SYMDEKO [Concomitant]
     Active Substance: IVACAFTOR\TEZACAFTOR
  2. TOBRAMYCIN. [Concomitant]
     Active Substance: TOBRAMYCIN
  3. AZTREONAM LYSINE [Suspect]
     Active Substance: AZTREONAM LYSINE
     Indication: CYSTIC FIBROSIS
     Dosage: 75 MG, 28 DAYS, THEN OFF FOR 28 DAYS
     Route: 055
     Dates: start: 20170531

REACTIONS (2)
  - Embolism [Unknown]
  - Cystic fibrosis [Unknown]
